FAERS Safety Report 6145083-6 (Version None)
Quarter: 2009Q2

REPORT INFORMATION
  Report Type: 
  Country: None (occurrence: None)
  Receive Date: 20090406
  Receipt Date: 20081210
  Transmission Date: 20091009
  Serious: No
  Sender: FDA-Public Use
  Company Number: A0759719A

PATIENT
  Age: 55 Year
  Sex: Male

DRUGS (3)
  1. ADVAIR HFA [Suspect]
     Indication: ASTHMA
     Route: 065
  2. COMBIVENT [Concomitant]
  3. SINGULAIR [Concomitant]

REACTIONS (2)
  - DRY MOUTH [None]
  - SCAB [None]
